FAERS Safety Report 8960005 (Version 1)
Quarter: 2012Q4

REPORT INFORMATION
  Report Type: 
  Country: CO (occurrence: CO)
  Receive Date: 20121212
  Receipt Date: 20121212
  Transmission Date: 20130627
  Serious: Yes (Hospitalization, Other)
  Sender: FDA-Public Use
  Company Number: CO-AMGEN-COLSP2012079653

PATIENT
  Age: 79 Year
  Sex: Male

DRUGS (4)
  1. ENBREL [Suspect]
     Indication: PSORIASIS
     Dosage: 50 mg, 2x/week
     Route: 058
     Dates: start: 2010, end: 2011
  2. ENBREL [Suspect]
     Dosage: 50 mg, weekly
     Route: 058
     Dates: start: 2011, end: 201108
  3. METFORMIN [Concomitant]
     Indication: DIABETES MELLITUS
     Dosage: 800 mg, 3x/day
     Route: 048
     Dates: start: 2009
  4. METHOTREXATE [Concomitant]
     Indication: THYROID DISORDER
     Dosage: 100 mg, 1x/day
     Route: 048
     Dates: start: 2009

REACTIONS (4)
  - Road traffic accident [Recovered/Resolved]
  - Vertigo [Not Recovered/Not Resolved]
  - Dizziness [Not Recovered/Not Resolved]
  - Infection [Recovered/Resolved]
